FAERS Safety Report 5663537-3 (Version None)
Quarter: 2008Q1

REPORT INFORMATION
  Report Type: 
  Country: None (occurrence: None)
  Receive Date: 20080307
  Receipt Date: 20080225
  Transmission Date: 20080703
  Serious: Yes (Hospitalization)
  Sender: FDA-Public Use
  Company Number: 2008S1003122

PATIENT
  Sex: Male

DRUGS (1)
  1. PHENYTOIN SODIUM [Suspect]
     Indication: CONVULSION
     Dosage: ;ORAL
     Route: 048
     Dates: start: 20070212

REACTIONS (4)
  - CONVULSION [None]
  - HYPERSENSITIVITY [None]
  - RASH [None]
  - STEVENS-JOHNSON SYNDROME [None]
